FAERS Safety Report 17224594 (Version 1)
Quarter: 2019Q4

REPORT INFORMATION
  Report Type: Spontaneous
  Country: US (occurrence: US)
  Receive Date: 20191209
  Receipt Date: 20191209
  Transmission Date: 20200122
  Serious: Yes (Hospitalization)
  Sender: FDA-Public Use
  Company Number: None

PATIENT
  Age: 30 Year
  Sex: Male
  Weight: 80 kg

DRUGS (1)
  1. SULFAMETHOXAZOLE/TRIMETHOPRIM SULFAMETHOXAZOLE 800MG/TRIMETHOPRIM 160 [Suspect]
     Active Substance: SULFAMETHOXAZOLE\TRIMETHOPRIM
     Dosage: ?          OTHER DOSE:800/160 MG;?
     Route: 048
     Dates: start: 20191028, end: 20191103

REACTIONS (23)
  - Blood creatinine increased [None]
  - Ocular hyperaemia [None]
  - Asthenia [None]
  - Decreased appetite [None]
  - Urticaria [None]
  - Hyperhidrosis [None]
  - Dizziness [None]
  - Erythema multiforme [None]
  - Pruritus [None]
  - Pain [None]
  - Meningitis [None]
  - Drug reaction with eosinophilia and systemic symptoms [None]
  - Acute kidney injury [None]
  - Blood urea increased [None]
  - Chills [None]
  - Nausea [None]
  - Pyrexia [None]
  - Myalgia [None]
  - Cough [None]
  - Malaise [None]
  - Rash [None]
  - Headache [None]
  - Sepsis [None]

NARRATIVE: CASE EVENT DATE: 20191103
